FAERS Safety Report 9743387 (Version 2)
Quarter: 2013Q4

REPORT INFORMATION
  Report Type: Spontaneous
  Country: US (occurrence: US)
  Receive Date: 20131210
  Receipt Date: 20131210
  Transmission Date: 20140711
  Serious: Yes (Hospitalization, Other)
  Sender: FDA-Public Use
  Company Number: US-TEVA-379433USA

PATIENT
  Age: 28 Year
  Sex: Female
  Weight: 67.65 kg

DRUGS (5)
  1. PARAGARD 380A [Suspect]
     Indication: CONTRACEPTION
     Route: 015
     Dates: end: 20130108
  2. ALPRAZOLAM [Concomitant]
  3. AUGMENTIN [Concomitant]
  4. WELLBUTRIN [Concomitant]
  5. BUSPAR [Concomitant]

REACTIONS (6)
  - Embedded device [Recovered/Resolved]
  - Vaginal haemorrhage [Unknown]
  - Device dislocation [Unknown]
  - Discomfort [Unknown]
  - Muscle spasms [Unknown]
  - Pelvic pain [Recovered/Resolved]
